FAERS Safety Report 18804690 (Version 1)
Quarter: 2021Q1

REPORT INFORMATION
  Report Type: Spontaneous
  Country: US (occurrence: US)
  Receive Date: 20210129
  Receipt Date: 20210129
  Transmission Date: 20210419
  Serious: No
  Sender: FDA-Public Use
  Company Number: US-UCBSA-2020044974

PATIENT
  Age: 62 Year
  Sex: Female

DRUGS (4)
  1. ATORVASTATIN [Concomitant]
     Active Substance: ATORVASTATIN
     Indication: SUBARACHNOID HAEMORRHAGE
     Dosage: UNKNOWN DOSE
  2. NIMODIPINE. [Concomitant]
     Active Substance: NIMODIPINE
     Indication: SUBARACHNOID HAEMORRHAGE
     Dosage: UNKNOWN DOSE
  3. LEVETIRACETAM. [Suspect]
     Active Substance: LEVETIRACETAM
     Indication: OFF LABEL USE
  4. LEVETIRACETAM. [Suspect]
     Active Substance: LEVETIRACETAM
     Indication: SUBARACHNOID HAEMORRHAGE
     Dosage: UNKNOWN DOSE

REACTIONS (1)
  - No adverse event [Unknown]
